FAERS Safety Report 4570774-8 (Version None)
Quarter: 2005Q1

REPORT INFORMATION
  Report Type: 
  Country: None (occurrence: None)
  Receive Date: 20050202
  Receipt Date: 20050117
  Transmission Date: 20050727
  Serious: Yes (Death)
  Sender: FDA-Public Use
  Company Number: S05-IRL-00283-01

PATIENT
  Sex: Male

DRUGS (1)
  1. CITALOPRAM [Suspect]

REACTIONS (1)
  - DRUG LEVEL INCREASED [None]
